FAERS Safety Report 17000073 (Version 1)
Quarter: 2019Q4

REPORT INFORMATION
  Report Type: Other
  Country: CA (occurrence: CA)
  Receive Date: 20191106
  Receipt Date: 20191106
  Transmission Date: 20200122
  Serious: Yes (Hospitalization, Congenital Anomaly)
  Sender: FDA-Public Use
  Company Number: CA-PFIZER INC-2019473766

PATIENT
  Age: 8 Hour
  Weight: 2 kg

DRUGS (14)
  1. PMS-BENZTROPINE [Suspect]
     Active Substance: BENZTROPINE MESYLATE
     Indication: SEIZURE
     Dosage: 1.5 MG, 1X/DAY
     Route: 064
  2. METHADONE [Suspect]
     Active Substance: METHADONE HYDROCHLORIDE
     Dosage: 70 MG, 1X/DAY
     Route: 064
  3. RABEPRAZOLE [Suspect]
     Active Substance: RABEPRAZOLE
     Dosage: UNK
     Route: 064
  4. BENZTROPINE MESYLATE. [Suspect]
     Active Substance: BENZTROPINE MESYLATE
     Dosage: UNK
     Route: 064
  5. GABAPENTIN. [Suspect]
     Active Substance: GABAPENTIN
     Dosage: 1800 MG, 1X/DAY
     Route: 064
  6. CIPRALEX [Suspect]
     Active Substance: ESCITALOPRAM OXALATE
     Dosage: UNK
     Route: 064
  7. CIPRALEX [Suspect]
     Active Substance: ESCITALOPRAM OXALATE
     Dosage: 20 MG, 1X/DAY
     Route: 064
  8. METHADONE [Suspect]
     Active Substance: METHADONE HYDROCHLORIDE
     Indication: EX-DRUG ABUSER
     Dosage: UNK
     Route: 064
  9. NORTRIPTYLINE [Suspect]
     Active Substance: NORTRIPTYLINE
     Dosage: UNK
     Route: 064
  10. QUETIAPINE. [Suspect]
     Active Substance: QUETIAPINE
     Dosage: 300 MG, 2X/DAY
     Route: 064
  11. NORTRIPTYLINE [Suspect]
     Active Substance: NORTRIPTYLINE
     Dosage: 20 MG, 1X/DAY
     Route: 064
  12. ZOPICLONE [Suspect]
     Active Substance: ZOPICLONE
     Dosage: UNK
     Route: 064
  13. GABAPENTIN. [Suspect]
     Active Substance: GABAPENTIN
     Dosage: UNK
     Route: 064
  14. QUETIAPINE. [Suspect]
     Active Substance: QUETIAPINE
     Dosage: UNK
     Route: 064

REACTIONS (4)
  - Drug withdrawal syndrome neonatal [Recovered/Resolved]
  - Foetal exposure during pregnancy [Recovered/Resolved]
  - Trismus [Recovered/Resolved]
  - Premature baby [Recovered/Resolved]
